FAERS Safety Report 5284151-8 (Version None)
Quarter: 2007Q2

REPORT INFORMATION
  Report Type: 
  Country: None (occurrence: None)
  Receive Date: 20070403
  Receipt Date: 20070326
  Transmission Date: 20071010
  Serious: Yes (Other)
  Sender: FDA-Public Use
  Company Number: US-JNJFOC-20070306623

PATIENT
  Sex: Female
  Weight: 63.5 kg

DRUGS (4)
  1. FENTANYL TRANSDERMAL SYSTEM [Suspect]
     Indication: NERVE INJURY
     Route: 062
  2. DURAGESIC-100 [Suspect]
     Indication: NERVE INJURY
     Route: 062
  3. ZANAFLEX [Concomitant]
     Route: 048
  4. MORPHINE [Concomitant]
     Indication: PAIN
     Route: 048

REACTIONS (3)
  - DENTAL CARIES [None]
  - DRUG INEFFECTIVE [None]
  - WRONG TECHNIQUE IN DRUG USAGE PROCESS [None]
